FAERS Safety Report 18300456 (Version 2)
Quarter: 2021Q4

REPORT INFORMATION
  Report Type: Spontaneous
  Country: CA (occurrence: CA)
  Receive Date: 20200923
  Receipt Date: 20211229
  Transmission Date: 20220303
  Serious: Yes (Hospitalization, Other)
  Sender: FDA-Public Use
  Company Number: None

PATIENT
  Age: 60 Year
  Sex: Female

DRUGS (5)
  1. ATENOLOL [Suspect]
     Active Substance: ATENOLOL
     Indication: Product used for unknown indication
     Dosage: 50.0MG UNKNOWN
     Route: 048
  2. SANDOSTATIN [Suspect]
     Active Substance: OCTREOTIDE ACETATE
     Indication: Carcinoid tumour
     Dosage: THREE TIME A DAY
     Route: 058
     Dates: start: 20110425
  3. SANDOSTATIN LAR DEPOT [Suspect]
     Active Substance: OCTREOTIDE ACETATE
     Indication: Carcinoid tumour
     Dosage: MONTHLY
     Route: 030
     Dates: start: 20110427
  4. NICODERM CQ [Concomitant]
     Active Substance: NICOTINE
     Indication: Product used for unknown indication
     Route: 065
  5. MICARDIS [Concomitant]
     Active Substance: TELMISARTAN
     Indication: Product used for unknown indication
     Dosage: 80.0MG UNKNOWN
     Route: 065

REACTIONS (10)
  - Headache [Unknown]
  - Nausea [Unknown]
  - Syncope [Unknown]
  - Blood pressure increased [Unknown]
  - Blood pressure systolic [Unknown]
  - Cardiac disorder [Unknown]
  - Facial bones fracture [Unknown]
  - Fall [Unknown]
  - Malignant neoplasm progression [Unknown]
  - Blood pressure decreased [Unknown]

NARRATIVE: CASE EVENT DATE: 20170222
